FAERS Safety Report 4644644-0 (Version None)
Quarter: 2005Q2

REPORT INFORMATION
  Report Type: 
  Country: None (occurrence: None)
  Receive Date: 20050422
  Receipt Date: 20050414
  Transmission Date: 20051028
  Serious: Yes (Hospitalization)
  Sender: FDA-Public Use
  Company Number: ZONI002137

PATIENT
  Age: 74 Year
  Sex: Male

DRUGS (6)
  1. EXCEGRAN (ZONISAMIDE) [Suspect]
     Dosage: 300 MG, 3 IN 1 D, ORAL
     Route: 048
     Dates: start: 20050310, end: 20050411
  2. OLMETEC (OLMESARTAN) [Concomitant]
  3. AMLODIPINE BESYLATE [Concomitant]
  4. ZANTAC [Concomitant]
  5. CEFZON (CEFDINIR) [Concomitant]
  6. TAMIFLU [Concomitant]

REACTIONS (2)
  - DRUG ERUPTION [None]
  - INTERSTITIAL LUNG DISEASE [None]
